FAERS Safety Report 20520906 (Version 1)
Quarter: 2022Q1

REPORT INFORMATION
  Report Type: Spontaneous
  Country: AT (occurrence: AT)
  Receive Date: 20220225
  Receipt Date: 20220225
  Transmission Date: 20220423
  Serious: Yes (Death)
  Sender: FDA-Public Use
  Company Number: AT-ELI_LILLY_AND_COMPANY-AT202202009265

PATIENT

DRUGS (1)
  1. ABEMACICLIB [Suspect]
     Active Substance: ABEMACICLIB
     Indication: Glioblastoma
     Dosage: UNK UNK, UNKNOWN
     Route: 065
     Dates: start: 20220124, end: 20220205

REACTIONS (2)
  - Death [Fatal]
  - Off label use [Unknown]
